FAERS Safety Report 5572934-6 (Version None)
Quarter: 2007Q4

REPORT INFORMATION
  Report Type: 
  Country: None (occurrence: None)
  Receive Date: 20071219
  Receipt Date: 20071219
  Transmission Date: 20080405
  Serious: No
  Sender: FDA-Public Use
  Company Number: None

PATIENT
  Age: 37 Year
  Sex: Male
  Weight: 132.4503 kg

DRUGS (4)
  1. DIVALPROEX SODIUM [Suspect]
     Dosage: 1000MG PO
     Route: 048
  2. ZIPRASIDONE HCL [Suspect]
     Dosage: 80MG PO
     Route: 048
  3. LORATADINE [Concomitant]
  4. ZOLPIDEM [Concomitant]

REACTIONS (1)
  - WEIGHT INCREASED [None]
